FAERS Safety Report 9175464 (Version 1)
Quarter: 2013Q1

REPORT INFORMATION
  Report Type: Report from Study
  Country: AT (occurrence: AT)
  Receive Date: 20130320
  Receipt Date: 20130320
  Transmission Date: 20140127
  Serious: Yes (Other)
  Sender: FDA-Public Use
  Company Number: AT-ROCHE-1203648

PATIENT
  Sex: Male

DRUGS (10)
  1. CAPECITABINE [Suspect]
     Indication: COLON CANCER
     Dosage: CYCLE 7 - 14 DAYS
     Route: 065
     Dates: start: 20060718, end: 20060807
  2. CAPECITABINE [Suspect]
     Dosage: CYCLE 2 - 14 DAYS
     Route: 065
     Dates: start: 20060808, end: 20060828
  3. CAPECITABINE [Suspect]
     Dosage: CYCLE 3 - 14 DAYS
     Route: 065
     Dates: start: 20060829, end: 20060918
  4. CAPECITABINE [Suspect]
     Dosage: CYCLE 4 - 14 DAYS
     Route: 065
     Dates: start: 20060919, end: 20061009
  5. CAPECITABINE [Suspect]
     Dosage: CYCLE5 - 14 DAYS
     Route: 065
     Dates: start: 20061010, end: 20061022
  6. CAPECITABINE [Suspect]
     Dosage: CYCLE 6 - 14 DAYS
     Route: 065
     Dates: start: 20061205, end: 20061225
  7. CAPECITABINE [Suspect]
     Dosage: CYCLE 7- 14 DAYS
     Route: 065
     Dates: start: 20061226, end: 20070115
  8. CAPECITABINE [Suspect]
     Dosage: CYCLE 8 - 14 DAYS
     Route: 065
     Dates: start: 20070116, end: 20070205
  9. CAPECITABINE [Suspect]
     Dosage: CYCLE 9 -14 DAYS
     Route: 065
     Dates: start: 20070206, end: 20070226
  10. CAPECITABINE [Suspect]
     Dosage: CYCLE 10 - 14 DAYS
     Route: 065
     Dates: start: 20070227, end: 20070330

REACTIONS (1)
  - Metastasis [Unknown]
